FAERS Safety Report 24992409 (Version 2)
Quarter: 2025Q1

REPORT INFORMATION
  Report Type: Report from Study
  Country: US (occurrence: US)
  Receive Date: 20250220
  Receipt Date: 20250315
  Transmission Date: 20250408
  Serious: Yes (Other)
  Sender: ABBVIE
  Company Number: US-ABBVIE-6042483

PATIENT
  Age: 64 Year
  Sex: Female
  Weight: 68 kg

DRUGS (18)
  1. HUMIRA [Suspect]
     Active Substance: ADALIMUMAB
     Indication: Colitis ulcerative
     Route: 058
     Dates: start: 20241116
  2. HUMIRA [Suspect]
     Active Substance: ADALIMUMAB
     Indication: Crohn^s disease
     Route: 058
     Dates: start: 20241210
  3. HUMIRA [Suspect]
     Active Substance: ADALIMUMAB
     Indication: Inflammatory bowel disease
     Route: 058
     Dates: start: 20250102
  4. HUMIRA [Suspect]
     Active Substance: ADALIMUMAB
     Indication: Gastritis
     Route: 058
     Dates: start: 20180814
  5. HUMIRA [Suspect]
     Active Substance: ADALIMUMAB
     Indication: Gastrooesophageal reflux disease
  6. MESALAMINE [Concomitant]
     Active Substance: MESALAMINE
     Indication: Colitis ulcerative
  7. OMEPRAZOLE [Concomitant]
     Active Substance: OMEPRAZOLE
     Indication: Colitis ulcerative
  8. CARAFATE [Concomitant]
     Active Substance: SUCRALFATE
     Indication: Colitis ulcerative
  9. CELEBREX [Concomitant]
     Active Substance: CELECOXIB
     Indication: Fibromyalgia
  10. GABAPENTIN [Concomitant]
     Active Substance: GABAPENTIN
     Indication: Fibromyalgia
  11. EXELON [Concomitant]
     Active Substance: RIVASTIGMINE TARTRATE
     Indication: Fibromyalgia
  12. TRAZODONE [Concomitant]
     Active Substance: TRAZODONE HYDROCHLORIDE
     Indication: Fibromyalgia
  13. LOSARTAN [Concomitant]
     Active Substance: LOSARTAN
     Indication: Hypertension
  14. LOMOTIL [Concomitant]
     Active Substance: ATROPINE SULFATE\DIPHENOXYLATE HYDROCHLORIDE
     Indication: Colitis ulcerative
  15. EZETIMIBE [Concomitant]
     Active Substance: EZETIMIBE
     Indication: Blood cholesterol increased
  16. DICYCLOMINE [Concomitant]
     Active Substance: DICYCLOMINE HYDROCHLORIDE
     Indication: Colitis ulcerative
  17. RITALIN [Concomitant]
     Active Substance: METHYLPHENIDATE HYDROCHLORIDE
     Indication: Attention deficit hyperactivity disorder
  18. VITAMIN D3 [Concomitant]
     Active Substance: CHOLECALCIFEROL
     Indication: Product used for unknown indication

REACTIONS (10)
  - Tendon operation [Unknown]
  - Irritable bowel syndrome [Recovering/Resolving]
  - Trigger finger [Unknown]
  - Pain in extremity [Not Recovered/Not Resolved]
  - Spondylitis [Unknown]
  - Hypoaesthesia [Unknown]
  - Stress [Unknown]
  - Myalgia [Unknown]
  - Back pain [Unknown]
  - Back disorder [Unknown]

NARRATIVE: CASE EVENT DATE: 20190101
